FAERS Safety Report 9141982 (Version 2)
Quarter: 2013Q2

REPORT INFORMATION
  Report Type: Spontaneous
  Country: US (occurrence: US)
  Receive Date: 20130305
  Receipt Date: 20130506
  Transmission Date: 20140414
  Serious: No
  Sender: FDA-Public Use
  Company Number: US-AMGEN-USASP2013014603

PATIENT
  Age: 18 Year
  Sex: Female
  Weight: 46.5 kg

DRUGS (2)
  1. ENBREL [Suspect]
     Indication: PSORIASIS
     Dosage: 50 MG, WEEKLY
     Route: 058
     Dates: start: 20130211
  2. METHOTREXATE [Concomitant]
     Indication: JUVENILE IDIOPATHIC ARTHRITIS
     Dosage: 2.5 MG, QWK, 6 PILLS
     Route: 048
     Dates: start: 20120924

REACTIONS (1)
  - Nasopharyngitis [Not Recovered/Not Resolved]
